FAERS Safety Report 21784114 (Version 1)
Quarter: 2022Q4

REPORT INFORMATION
  Report Type: Spontaneous
  Country: AT (occurrence: AT)
  Receive Date: 20221227
  Receipt Date: 20221227
  Transmission Date: 20230113
  Serious: Yes (Other)
  Sender: FDA-Public Use
  Company Number: AT-BAXTER-2022BAX025959

PATIENT
  Age: 70 Year
  Sex: Male

DRUGS (23)
  1. VELCADE [Suspect]
     Active Substance: BORTEZOMIB
     Indication: Plasma cell myeloma
     Dosage: UNK
     Route: 065
     Dates: start: 201505, end: 201507
  2. VELCADE [Suspect]
     Active Substance: BORTEZOMIB
     Dosage: UNK
     Route: 065
  3. NINLARO [Suspect]
     Active Substance: IXAZOMIB CITRATE
     Indication: Bone lesion
     Dosage: UNK
     Route: 065
     Dates: start: 202107, end: 202108
  4. NINLARO [Suspect]
     Active Substance: IXAZOMIB CITRATE
     Indication: Plasma cell myeloma
  5. DEXAMETHASONE [Suspect]
     Active Substance: DEXAMETHASONE
     Indication: Plasma cell myeloma
     Dosage: UNK
     Route: 065
     Dates: start: 201505, end: 201507
  6. DEXAMETHASONE [Suspect]
     Active Substance: DEXAMETHASONE
     Dosage: UNK
     Route: 065
     Dates: start: 201706, end: 201901
  7. DEXAMETHASONE [Suspect]
     Active Substance: DEXAMETHASONE
     Dosage: UNK
     Route: 065
     Dates: start: 201901, end: 202107
  8. DEXAMETHASONE [Suspect]
     Active Substance: DEXAMETHASONE
     Dosage: UNK
     Route: 065
     Dates: start: 202107, end: 202108
  9. DEXAMETHASONE [Suspect]
     Active Substance: DEXAMETHASONE
     Dosage: UNK
     Route: 065
     Dates: start: 202108, end: 202209
  10. DARZALEX [Suspect]
     Active Substance: DARATUMUMAB
     Indication: Bone lesion
     Dosage: UNK
     Route: 065
     Dates: start: 201901, end: 202107
  11. DARZALEX [Suspect]
     Active Substance: DARATUMUMAB
     Indication: Plasma cell myeloma
     Dosage: UNK
     Route: 065
  12. ELOTUZUMAB [Suspect]
     Active Substance: ELOTUZUMAB
     Indication: Bone lesion
     Dosage: UNK
     Route: 065
     Dates: start: 202108, end: 202209
  13. ELOTUZUMAB [Suspect]
     Active Substance: ELOTUZUMAB
     Indication: Plasma cell myeloma
  14. POMALIDOMIDE [Suspect]
     Active Substance: POMALIDOMIDE
     Indication: Plasma cell myeloma
     Dosage: UNK
     Route: 065
     Dates: start: 202108, end: 202209
  15. POMALIDOMIDE [Suspect]
     Active Substance: POMALIDOMIDE
     Indication: Bone lesion
  16. BELANTAMAB MAFODOTIN [Suspect]
     Active Substance: BELANTAMAB MAFODOTIN
     Indication: Bone lesion
     Dosage: UNK
     Route: 065
     Dates: start: 202209, end: 202211
  17. BELANTAMAB MAFODOTIN [Suspect]
     Active Substance: BELANTAMAB MAFODOTIN
     Indication: Plasma cell myeloma
  18. CYCLOPHOSPHAMIDE [Suspect]
     Active Substance: CYCLOPHOSPHAMIDE
     Indication: Plasma cell myeloma
     Dosage: UNK
     Route: 065
     Dates: start: 201505
  19. CYCLOPHOSPHAMIDE [Suspect]
     Active Substance: CYCLOPHOSPHAMIDE
     Indication: Haematopoietic stem cell mobilisation
     Dosage: UNK
     Route: 065
     Dates: start: 201508
  20. CYCLOPHOSPHAMIDE [Suspect]
     Active Substance: CYCLOPHOSPHAMIDE
     Indication: Bone lesion
     Dosage: UNK
     Route: 065
     Dates: start: 202107, end: 202108
  21. MELPHALAN [Suspect]
     Active Substance: MELPHALAN
     Indication: Chemotherapy
     Dosage: UNK
     Route: 065
     Dates: start: 201509
  22. REVLIMID [Suspect]
     Active Substance: LENALIDOMIDE
     Indication: Bone lesion
     Dosage: UNK
     Route: 065
     Dates: start: 201706, end: 201901
  23. REVLIMID [Suspect]
     Active Substance: LENALIDOMIDE
     Indication: Plasma cell myeloma
     Dosage: UNK
     Route: 065
     Dates: start: 201901, end: 202107

REACTIONS (4)
  - Neoplasm progression [Unknown]
  - Therapy partial responder [Unknown]
  - Keratopathy [Unknown]
  - Toxicity to various agents [Unknown]

NARRATIVE: CASE EVENT DATE: 20170601
